FAERS Safety Report 11201407 (Version 1)
Quarter: 2015Q2

REPORT INFORMATION
  Report Type: Spontaneous
  Country: IT (occurrence: IT)
  Receive Date: 20150619
  Receipt Date: 20150619
  Transmission Date: 20150821
  Serious: Yes (Hospitalization)
  Sender: FDA-Public Use
  Company Number: IT-HOSPIRA-2676528

PATIENT
  Age: 70 Year
  Sex: Female

DRUGS (6)
  1. TAMOXIFEN CITRATE. [Concomitant]
     Active Substance: TAMOXIFEN CITRATE
     Indication: PRODUCT USED FOR UNKNOWN INDICATION
     Route: 048
  2. PAROXETINE MESILATE [Concomitant]
     Active Substance: PAROXETINE MESYLATE
     Indication: PRODUCT USED FOR UNKNOWN INDICATION
  3. BROMAZEPAM [Concomitant]
     Active Substance: BROMAZEPAM
     Indication: PRODUCT USED FOR UNKNOWN INDICATION
     Route: 048
  4. METFORMIN HYDROCHLORIDE. [Concomitant]
     Active Substance: METFORMIN HYDROCHLORIDE
     Indication: PRODUCT USED FOR UNKNOWN INDICATION
     Route: 048
  5. CYTARABINE. [Suspect]
     Active Substance: CYTARABINE
     Indication: DISSEMINATED LARGE CELL LYMPHOMA
     Dosage: DAILY
     Route: 042
     Dates: start: 20120805, end: 20120806
  6. RITUXIMAB [Suspect]
     Active Substance: RITUXIMAB
     Indication: DISSEMINATED LARGE CELL LYMPHOMA
     Route: 042
     Dates: start: 20120804, end: 20120804

REACTIONS (3)
  - Psychomotor hyperactivity [Recovered/Resolved]
  - Abasia [Recovered/Resolved]
  - Sopor [Recovered/Resolved]

NARRATIVE: CASE EVENT DATE: 20120818
